FAERS Safety Report 9998117 (Version 2)
Quarter: 2014Q2

REPORT INFORMATION
  Report Type: Spontaneous
  Country: US (occurrence: US)
  Receive Date: 20140311
  Receipt Date: 20140525
  Transmission Date: 20141212
  Serious: No
  Sender: FDA-Public Use
  Company Number: US-TEVA-467927USA

PATIENT
  Sex: Female

DRUGS (13)
  1. COPAXONE [Suspect]
  2. LISINOPRIL [Concomitant]
  3. CYMBALTA [Concomitant]
  4. KLONOPIN [Concomitant]
  5. VASOTEC [Concomitant]
  6. PRILOSEC [Concomitant]
  7. SYNTHROID [Concomitant]
  8. ZANAFLEX [Concomitant]
  9. ZETIA [Concomitant]
  10. SPIRIVA [Concomitant]
  11. VENTOLIN [Concomitant]
  12. DITROPAN [Concomitant]
  13. PREMARIN [Concomitant]

REACTIONS (2)
  - Injection site erythema [Recovered/Resolved]
  - Injection site induration [Recovered/Resolved]
